FAERS Safety Report 17272923 (Version 1)
Quarter: 2020Q1

REPORT INFORMATION
  Report Type: Spontaneous
  Country: US (occurrence: US)
  Receive Date: 20200115
  Receipt Date: 20200115
  Transmission Date: 20200409
  Serious: No
  Sender: FDA-Public Use
  Company Number: None

PATIENT
  Age: 70 Year
  Sex: Male
  Weight: 72.8 kg

DRUGS (3)
  1. DIPHENHYDRAMINE 25 MG [Concomitant]
     Dates: start: 20200114, end: 20200114
  2. DOCETAXEL. [Suspect]
     Active Substance: DOCETAXEL
     Indication: PROSTATE CANCER
     Dosage: ?          OTHER FREQUENCY:ONE TIME INFUSION;?
     Route: 051
     Dates: start: 20200114, end: 20200114
  3. HYDROCORTISONE 100 MG [Concomitant]
     Dates: start: 20200114, end: 20200114

REACTIONS (1)
  - Hot flush [None]

NARRATIVE: CASE EVENT DATE: 20200114
